FAERS Safety Report 9414273 (Version 1)
Quarter: 2013Q2

REPORT INFORMATION
  Report Type: Spontaneous
  Country: FR (occurrence: None)
  Receive Date: 20130613
  Receipt Date: 20130613
  Transmission Date: 20140414
  Serious: Yes (Hospitalization)
  Sender: FDA-Public Use
  Company Number: FR-011788

PATIENT
  Age: 28 Year
  Sex: Female

DRUGS (3)
  1. MENOPUR [Suspect]
     Indication: IN VITRO FERTILISATION
     Dates: start: 20130108, end: 20130113
  2. DECAPEPTYL [Suspect]
     Indication: IN VITRO FERTILISATION
     Route: 058
     Dates: start: 20130108, end: 20130116
  3. GONADOTROPHINE CHORIONIQUE ENDO 5000 UI/1ML [Suspect]
     Indication: PRODUCT USED FOR UNKNOWN INDICATION
     Route: 030
     Dates: start: 20130117, end: 20130117

REACTIONS (4)
  - Ovarian hyperstimulation syndrome [None]
  - Ascites [None]
  - Pregnancy [None]
  - Abortion spontaneous [None]
